FAERS Safety Report 4773412-4 (Version None)
Quarter: 2005Q3

REPORT INFORMATION
  Report Type: 
  Country: None (occurrence: None)
  Receive Date: 20050920
  Receipt Date: 20050908
  Transmission Date: 20060218
  Serious: Yes (Other)
  Sender: FDA-Public Use
  Company Number: US-JNJFOC-20050407167

PATIENT
  Sex: Female
  Weight: 94.35 kg

DRUGS (7)
  1. REMICADE [Suspect]
     Route: 042
  2. REMICADE [Suspect]
     Indication: RHEUMATOID ARTHRITIS
     Route: 042
  3. PLAQUENIL [Concomitant]
     Indication: RHEUMATOID ARTHRITIS
  4. QUININE SULFATE [Concomitant]
  5. CLINORIL [Concomitant]
     Indication: RHEUMATOID ARTHRITIS
  6. POTASSIUM [Concomitant]
  7. PREDNISONE [Concomitant]

REACTIONS (4)
  - INTERVERTEBRAL DISC DEGENERATION [None]
  - OSTEOPOROSIS [None]
  - POLYMYALGIA RHEUMATICA [None]
  - URINARY TRACT INFECTION [None]
